FAERS Safety Report 15998629 (Version 1)
Quarter: 2019Q1

REPORT INFORMATION
  Report Type: Report from Study
  Country: ES (occurrence: ES)
  Receive Date: 20190223
  Receipt Date: 20190223
  Transmission Date: 20190418
  Serious: Yes (Hospitalization, Other)
  Sender: FDA-Public Use
  Company Number: ES-ACCORD-108965

PATIENT
  Age: 86 Year
  Sex: Female

DRUGS (8)
  1. BISOPROLOL [Concomitant]
     Active Substance: BISOPROLOL
     Indication: TACHYCARDIA
     Dosage: ONE TABLET AT BREAKFAST AND ANOTHER AT DINNER.
     Route: 048
     Dates: start: 2018
  2. LEXATIN [Concomitant]
     Dosage: 0-0-1
     Route: 048
  3. ADIRO [Concomitant]
     Active Substance: ASPIRIN
     Dosage: ONE TABLET TO THE FOOD
     Route: 048
     Dates: start: 2018
  4. AMIODARONE [Interacting]
     Active Substance: AMIODARONE
     Indication: VENTRICULAR TACHYCARDIA
     Dosage: ONE TABLET TO THE FOOD
     Route: 048
     Dates: start: 20180131, end: 20180305
  5. ATORVASTATIN/ATORVASTATIN CALCIUM [Suspect]
     Active Substance: ATORVASTATIN CALCIUM
     Indication: ACUTE MYOCARDIAL INFARCTION
     Route: 048
     Dates: start: 201802, end: 20180305
  6. OMEPRAZOLE. [Concomitant]
     Active Substance: OMEPRAZOLE
     Dosage: 1-0-0
     Route: 048
  7. FUROSEMIDE. [Concomitant]
     Active Substance: FUROSEMIDE
     Indication: CARDIAC FAILURE
     Dosage: ONE TABLET AT BREAKFAST.
     Route: 048
     Dates: start: 2018, end: 20180305
  8. CLOPIDOGREL [Concomitant]
     Active Substance: CLOPIDOGREL BISULFATE
     Dosage: ONE TABLET TO THE FOOD
     Route: 048
     Dates: start: 2018

REACTIONS (6)
  - Muscular weakness [Recovering/Resolving]
  - Drug interaction [Unknown]
  - Asthenia [Recovering/Resolving]
  - Hepatitis toxic [Recovering/Resolving]
  - Decreased appetite [Recovering/Resolving]
  - Rhabdomyolysis [Recovering/Resolving]

NARRATIVE: CASE EVENT DATE: 201802
